FAERS Safety Report 9966992 (Version 2)
Quarter: 2014Q1

REPORT INFORMATION
  Report Type: Report from Study
  Country: EG (occurrence: EG)
  Receive Date: 20140305
  Receipt Date: 20140318
  Transmission Date: 20141002
  Serious: No
  Sender: FDA-Public Use
  Company Number: EG-US-EMD SERONO, INC.-7272170

PATIENT
  Age: 47 Year
  Sex: Female
  Weight: 60 kg

DRUGS (3)
  1. REBIF [Suspect]
     Indication: MULTIPLE SCLEROSIS
     Route: 058
     Dates: start: 201311
  2. STUGERON [Concomitant]
     Indication: PRODUCT USED FOR UNKNOWN INDICATION
     Route: 048
     Dates: start: 201311
  3. RIBAVIRIN [Concomitant]
     Indication: VITAMIN SUPPLEMENTATION
     Route: 048
     Dates: start: 201311

REACTIONS (5)
  - Sleep talking [Not Recovered/Not Resolved]
  - Chest discomfort [Not Recovered/Not Resolved]
  - Abdominal discomfort [Unknown]
  - Psychiatric symptom [Not Recovered/Not Resolved]
  - Disturbance in attention [Not Recovered/Not Resolved]
